FAERS Safety Report 16742519 (Version 2)
Quarter: 2020Q2

REPORT INFORMATION
  Report Type: Report from Study
  Country: DE (occurrence: DE)
  Receive Date: 20190826
  Receipt Date: 20200506
  Transmission Date: 20200713
  Serious: Yes (Hospitalization, Other)
  Sender: FDA-Public Use
  Company Number: PHHY2019DE054742

PATIENT
  Sex: Female
  Weight: 67 kg

DRUGS (10)
  1. KISQALI [Suspect]
     Active Substance: RIBOCICLIB
     Dosage: 200 MG, QD
     Route: 048
     Dates: start: 20190306, end: 20190310
  2. KISQALI [Suspect]
     Active Substance: RIBOCICLIB
     Dosage: 400 MG, QD
     Route: 048
     Dates: start: 20190415, end: 20190428
  3. KISQALI [Suspect]
     Active Substance: RIBOCICLIB
     Dosage: 200 MG, QD
     Route: 048
     Dates: start: 20190429, end: 20190429
  4. KISQALI [Suspect]
     Active Substance: RIBOCICLIB
     Dosage: 200 MG, QD
     Route: 048
     Dates: start: 20190403, end: 20190407
  5. KISQALI [Suspect]
     Active Substance: RIBOCICLIB
     Dosage: 200 MG, QD
     Route: 048
     Dates: start: 20190527, end: 20190602
  6. LETROZOLE. [Suspect]
     Active Substance: LETROZOLE
     Indication: BREAST CANCER METASTATIC
     Dosage: 2.5 MG, QD
     Route: 048
     Dates: start: 20190218, end: 20190616
  7. KISQALI [Suspect]
     Active Substance: RIBOCICLIB
     Dosage: 200 MG, QD
     Route: 048
     Dates: start: 20190502, end: 20190505
  8. KISQALI [Suspect]
     Active Substance: RIBOCICLIB
     Dosage: 400 MG, QD
     Route: 048
     Dates: start: 20190513, end: 20190526
  9. KISQALI [Suspect]
     Active Substance: RIBOCICLIB
     Indication: BREAST CANCER METASTATIC
     Dosage: 600 MG, QD
     Route: 048
     Dates: start: 20190218, end: 20190305
  10. KISQALI [Suspect]
     Active Substance: RIBOCICLIB
     Dosage: 400 MG, QD
     Route: 048
     Dates: start: 20190318, end: 20190402

REACTIONS (3)
  - Dyspnoea [Recovered/Resolved]
  - Neutropenia [Recovering/Resolving]
  - Cardiac failure [Recovered/Resolved]

NARRATIVE: CASE EVENT DATE: 20190306
